FAERS Safety Report 21254378 (Version 1)
Quarter: 2022Q3

REPORT INFORMATION
  Report Type: Spontaneous
  Country: FR (occurrence: FR)
  Receive Date: 20220825
  Receipt Date: 20220825
  Transmission Date: 20221027
  Serious: Yes (Hospitalization)
  Sender: FDA-Public Use
  Company Number: FR-STADA-255243

PATIENT
  Age: 68 Year
  Sex: Male

DRUGS (1)
  1. SUNITINIB MALATE [Suspect]
     Active Substance: SUNITINIB MALATE
     Dosage: SUNITINIB 50 MG/DAY 4 WEEKS/6
     Route: 065

REACTIONS (1)
  - Skin ulcer [Recovered/Resolved]
